FAERS Safety Report 8694367 (Version 22)
Quarter: 2013Q4

REPORT INFORMATION
  Report Type: Report from Study
  Country: CA (occurrence: CA)
  Receive Date: 20120731
  Receipt Date: 20131004
  Transmission Date: 20140711
  Serious: Yes (Death, Hospitalization, Other)
  Sender: FDA-Public Use
  Company Number: CA-ROCHE-1050276

PATIENT
  Age: 64 Year
  Sex: Male
  Weight: 98.8 kg

DRUGS (8)
  1. AVASTIN [Suspect]
     Indication: GLIOBLASTOMA
     Route: 042
     Dates: start: 20110708, end: 20130607
  2. AVASTIN [Suspect]
     Route: 042
     Dates: start: 20121123
  3. AVASTIN [Suspect]
     Route: 065
     Dates: start: 20130426
  4. DECADRON [Suspect]
     Indication: PRODUCT USED FOR UNKNOWN INDICATION
     Route: 065
  5. DILANTIN [Concomitant]
  6. ZANTAC [Concomitant]
  7. ETOPOSIDE [Concomitant]
  8. TECTA [Concomitant]

REACTIONS (26)
  - Death [Fatal]
  - Influenza [Recovered/Resolved]
  - Panic attack [Not Recovered/Not Resolved]
  - Brain oedema [Unknown]
  - Vertigo [Not Recovered/Not Resolved]
  - Amnesia [Unknown]
  - Confusional state [Unknown]
  - Withdrawal syndrome [Unknown]
  - Convulsion [Unknown]
  - Weight decreased [Recovered/Resolved]
  - Drug ineffective [Unknown]
  - Partial seizures [Recovered/Resolved]
  - Mobility decreased [Not Recovered/Not Resolved]
  - Hypoaesthesia [Not Recovered/Not Resolved]
  - Nasopharyngitis [Unknown]
  - Asthenia [Unknown]
  - Back pain [Unknown]
  - Cerebrovascular accident [Unknown]
  - Headache [Unknown]
  - Speech disorder [Unknown]
  - Fall [Unknown]
  - Blood lactate dehydrogenase abnormal [Unknown]
  - Blood pressure increased [Not Recovered/Not Resolved]
  - Oropharyngeal pain [Recovered/Resolved]
  - Wound [Recovering/Resolving]
  - Weight increased [Unknown]
